FAERS Safety Report 4339003-4 (Version None)
Quarter: 2004Q2

REPORT INFORMATION
  Report Type: 
  Country: None (occurrence: None)
  Receive Date: 20040409
  Receipt Date: 20040331
  Transmission Date: 20050107
  Serious: No
  Sender: FDA-Public Use
  Company Number: 2004SE01872

PATIENT
  Age: 48 Year
  Sex: Male
  Weight: 43.5 kg

DRUGS (1)
  1. RHINOCORT [Suspect]
     Dosage: 100 UG DAILY IN
     Dates: start: 20040223, end: 20040301

REACTIONS (5)
  - DRY THROAT [None]
  - EYELID OEDEMA [None]
  - PRURITUS [None]
  - RASH PAPULAR [None]
  - SENSATION OF FOREIGN BODY [None]
